FAERS Safety Report 20244621 (Version 1)
Quarter: 2021Q4

REPORT INFORMATION
  Report Type: Spontaneous
  Country: US (occurrence: None)
  Receive Date: 20211229
  Receipt Date: 20211229
  Transmission Date: 20220303
  Serious: Yes (Other)
  Sender: FDA-Public Use
  Company Number: US-Hikma Pharmaceuticals USA Inc.-US-H14001-21-05482

PATIENT
  Age: 83 Year
  Sex: Female

DRUGS (2)
  1. HEPARIN [Suspect]
     Active Substance: HEPARIN SODIUM
     Indication: Acute myocardial infarction
     Dosage: UNKNOWN
     Route: 041
  2. DUAL ANTI PLATELET THERAPY [Concomitant]
     Indication: Acute myocardial infarction
     Dosage: UNKNOWN
     Route: 065

REACTIONS (5)
  - Defaecation urgency [Recovered/Resolved]
  - Abdominal pain [Recovered/Resolved]
  - Haematochezia [Unknown]
  - Haemoglobin decreased [Unknown]
  - Colitis ischaemic [Recovered/Resolved]
